FAERS Safety Report 24030700 (Version 2)
Quarter: 2024Q3

REPORT INFORMATION
  Report Type: Spontaneous
  Country: US (occurrence: US)
  Receive Date: 20240628
  Receipt Date: 20240826
  Transmission Date: 20241016
  Serious: No
  Sender: MYLAN
  Company Number: US-MYLANLABS-2024M1056970

PATIENT
  Sex: Female
  Weight: 61.23 kg

DRUGS (2)
  1. ESTRADIOL TRANSDERMAL SYSTEM [Suspect]
     Active Substance: ESTRADIOL
     Indication: Menopause
     Dosage: 0.1 MILLIGRAM, QD (ONCE-WEEKLY)
     Route: 062
     Dates: start: 20240501
  2. ESTRADIOL TRANSDERMAL SYSTEM [Suspect]
     Active Substance: ESTRADIOL
     Dosage: 0.05 MILLIGRAM, QD (ONCE-WEEKLY)
     Route: 062
     Dates: start: 20240503

REACTIONS (7)
  - Skin irritation [Unknown]
  - Breast swelling [Unknown]
  - Application site irritation [Unknown]
  - Application site rash [Unknown]
  - Product adhesion issue [Unknown]
  - Product quality issue [Unknown]
  - Product size issue [Unknown]
